FAERS Safety Report 9421751 (Version 1)
Quarter: 2013Q3

REPORT INFORMATION
  Report Type: Spontaneous
  Country: US (occurrence: US)
  Receive Date: 20130726
  Receipt Date: 20130726
  Transmission Date: 20140515
  Serious: Yes (Other)
  Sender: FDA-Public Use
  Company Number: US-ASTRAZENECA-2013SE55189

PATIENT
  Age: 64 Year
  Sex: Female

DRUGS (1)
  1. BRILINTA [Suspect]
     Route: 048
     Dates: start: 20130430

REACTIONS (1)
  - Retinal haemorrhage [Unknown]
